FAERS Safety Report 23964147 (Version 1)
Quarter: 2024Q2

REPORT INFORMATION
  Report Type: Spontaneous
  Country: US (occurrence: None)
  Receive Date: 20240611
  Receipt Date: 20240611
  Transmission Date: 20240716
  Serious: Yes (Hospitalization)
  Sender: FDA-Public Use
  Company Number: None

PATIENT
  Sex: Male
  Weight: 63 kg

DRUGS (1)
  1. OCTAGAM IMMUNE GLOBULIN (HUMAN) [Suspect]
     Active Substance: HUMAN IMMUNOGLOBULIN G
     Indication: Gastrointestinal bacterial overgrowth
     Dosage: 120 G GRAM (S)  LOADING DOSE  INTRAVENOUS?
     Route: 042
     Dates: start: 20240606, end: 20240606

REACTIONS (7)
  - Chills [None]
  - Pyrexia [None]
  - Infusion related reaction [None]
  - Cough [None]
  - Epistaxis [None]
  - Acute lymphocytic leukaemia recurrent [None]
  - Pulmonary mass [None]

NARRATIVE: CASE EVENT DATE: 20240606
